FAERS Safety Report 23649251 (Version 2)
Quarter: 2024Q1

REPORT INFORMATION
  Report Type: Spontaneous
  Country: BG (occurrence: BG)
  Receive Date: 20240319
  Receipt Date: 20240322
  Transmission Date: 20240410
  Serious: Yes (Other)
  Sender: FDA-Public Use
  Company Number: BG-009507513-2403BGR004426

PATIENT
  Age: 48 Year
  Sex: Female

DRUGS (2)
  1. KEYTRUDA [Suspect]
     Active Substance: PEMBROLIZUMAB
     Indication: Triple negative breast cancer
     Dosage: UNK
     Route: 042
     Dates: start: 202305, end: 2023
  2. KEYTRUDA [Suspect]
     Active Substance: PEMBROLIZUMAB
     Dosage: UNK
     Route: 042
     Dates: start: 20230619

REACTIONS (6)
  - Glucocorticoid deficiency [Unknown]
  - Type 1 diabetes mellitus [Unknown]
  - Hypothyroidism [Unknown]
  - Radiotherapy [Unknown]
  - Therapy partial responder [Unknown]
  - Blood oestrogen abnormal [Unknown]

NARRATIVE: CASE EVENT DATE: 20230101
